FAERS Safety Report 7183653-7 (Version None)
Quarter: 2010Q4

REPORT INFORMATION
  Report Type: 
  Country: None (occurrence: None)
  Receive Date: 20101222
  Receipt Date: 20101213
  Transmission Date: 20110411
  Serious: Yes (Life-Threatening, Other)
  Sender: FDA-Public Use
  Company Number: US-SANOFI-AVENTIS-2010SA075986

PATIENT
  Sex: Female
  Weight: 74.4 kg

DRUGS (10)
  1. DEMEROL [Suspect]
     Route: 065
  2. CELEBREX [Suspect]
     Indication: ARTHRITIS
     Route: 048
     Dates: start: 20050710, end: 20101101
  3. PIROXICAM [Suspect]
     Indication: ARTHRITIS
     Route: 065
     Dates: start: 20080710
  4. NAPROXEN [Suspect]
     Indication: ARTHRITIS
     Route: 065
     Dates: start: 20080602
  5. NAPROXEN [Suspect]
     Route: 065
     Dates: start: 20080612
  6. SYNTHROID [Concomitant]
  7. VITAMIN B-12 [Concomitant]
  8. VITAMIN D [Concomitant]
  9. OMEPRAZOLE [Concomitant]
  10. LIPITOR [Concomitant]

REACTIONS (1)
  - FEELING ABNORMAL [None]
